FAERS Safety Report 4365109-X (Version None)
Quarter: 2004Q2

REPORT INFORMATION
  Report Type: 
  Country: None (occurrence: None)
  Receive Date: 20040521
  Receipt Date: 20040512
  Transmission Date: 20050107
  Serious: No
  Sender: FDA-Public Use
  Company Number: F01200401115

PATIENT
  Age: 72 Year
  Sex: Male

DRUGS (2)
  1. ELOXATIN [Suspect]
     Indication: PANCREATIC CARCINOMA
     Dosage: INTRAVENOUS NOS
     Route: 042
  2. XELODA [Suspect]

REACTIONS (6)
  - FEELING HOT [None]
  - HYPERHIDROSIS [None]
  - INFUSION RELATED REACTION [None]
  - LOSS OF CONSCIOUSNESS [None]
  - PRURITUS [None]
  - URINARY INCONTINENCE [None]
